FAERS Safety Report 8223402-4 (Version None)
Quarter: 2012Q1

REPORT INFORMATION
  Report Type: 
  Country: None (occurrence: None)
  Receive Date: 20120321
  Receipt Date: 20120309
  Transmission Date: 20120608
  Serious: Yes (Other)
  Sender: FDA-Public Use
  Company Number: US-ELI_LILLY_AND_COMPANY-US201109000151

PATIENT
  Sex: Female
  Weight: 51.701 kg

DRUGS (17)
  1. ARICEPT [Concomitant]
  2. BUPROPION HYDROCHLORIDE [Concomitant]
  3. VYTORIN [Concomitant]
  4. MULTI-VITAMINS [Concomitant]
  5. VITAMIN D [Concomitant]
  6. TUMS                               /00193601/ [Concomitant]
  7. PEPCID [Concomitant]
  8. PRIMIDONE [Concomitant]
  9. ASPIRIN [Concomitant]
  10. FORTEO [Suspect]
     Indication: OSTEOPOROSIS
     Dosage: 20 UG, QD
     Dates: start: 20110623
  11. FORTEO [Suspect]
     Dosage: 20 UG, QD
  12. PROZAC [Concomitant]
  13. NEXIUM [Concomitant]
  14. COLACE [Concomitant]
  15. FORTEO [Suspect]
     Dosage: 20 UG, QD
     Route: 065
  16. SYNTHROID [Concomitant]
  17. XANAX [Concomitant]

REACTIONS (6)
  - PRURITUS [None]
  - CONTUSION [None]
  - INFESTATION [None]
  - SYSTEMIC LUPUS ERYTHEMATOSUS [None]
  - RASH [None]
  - INJECTION SITE HAEMATOMA [None]
